FAERS Safety Report 5359359-3 (Version None)
Quarter: 2007Q2

REPORT INFORMATION
  Report Type: 
  Country: None (occurrence: None)
  Receive Date: 20070615
  Receipt Date: 20070606
  Transmission Date: 20071010
  Serious: Yes (Death, Hospitalization)
  Sender: FDA-Public Use
  Company Number: VE-PFIZER INC-2006098718

PATIENT
  Sex: Male

DRUGS (4)
  1. LYRICA [Suspect]
     Indication: NEURALGIA
     Route: 048
     Dates: start: 20060701, end: 20060730
  2. NEURONTIN [Suspect]
     Indication: NEURALGIA
     Dosage: TEXT:UNKNOWN-FREQ:UNKNOWN
     Route: 065
     Dates: start: 20060101, end: 20060101
  3. PRIMPERAN INJ [Concomitant]
     Route: 065
  4. ALL OTHER THERAPEUTIC PRODUCTS [Concomitant]
     Route: 065

REACTIONS (2)
  - DEATH [None]
  - MOTION SICKNESS [None]
